FAERS Safety Report 19728254 (Version 1)
Quarter: 2021Q3

REPORT INFORMATION
  Report Type: Spontaneous
  Country: GB (occurrence: GB)
  Receive Date: 20210820
  Receipt Date: 20210820
  Transmission Date: 20211014
  Serious: Yes (Other)
  Sender: FDA-Public Use
  Company Number: GB-BAYER-2021-164192

PATIENT
  Age: 58 Year
  Sex: Female

DRUGS (2)
  1. MIRENA [Suspect]
     Active Substance: LEVONORGESTREL
     Indication: ENDOMETRIAL HYPERPLASIA
     Dosage: 2 DF, CONT
     Route: 015
     Dates: start: 20190627
  2. PROVERA [Suspect]
     Active Substance: MEDROXYPROGESTERONE ACETATE
     Indication: ENDOMETRIAL HYPERPLASIA
     Dosage: 200 MG, QD
     Route: 048
     Dates: start: 20190627, end: 20191010

REACTIONS (8)
  - Antiphospholipid syndrome [None]
  - Transient ischaemic attack [Recovering/Resolving]
  - Pulmonary embolism [Recovered/Resolved with Sequelae]
  - Gait disturbance [Recovered/Resolved with Sequelae]
  - Dyspnoea [Recovered/Resolved with Sequelae]
  - Intentional device use issue [None]
  - Fatigue [Recovered/Resolved with Sequelae]
  - Device use issue [None]

NARRATIVE: CASE EVENT DATE: 20190627
